FAERS Safety Report 4747867-5 (Version None)
Quarter: 2005Q3

REPORT INFORMATION
  Report Type: 
  Country: None (occurrence: None)
  Receive Date: 20050816
  Receipt Date: 20050805
  Transmission Date: 20060218
  Serious: Yes (Other)
  Sender: FDA-Public Use
  Company Number: 2005-DE-03079GD

PATIENT
  Age: 35 Year
  Sex: Male

DRUGS (8)
  1. ALBUTEROL SULFATE HFA [Suspect]
  2. OXYCODONE HCL AND ACETAMINOPHEN [Suspect]
  3. NITISINONE (NITISINONE) [Suspect]
     Indication: ALKAPTONURIA
     Dosage: 2.1 MG, BID, PO
     Route: 048
  4. DOCUSATE SODIUM (DOCUSATE SODIUM) [Suspect]
  5. CHOLINE MAGNESIUM TRISALICYLATE (CHOLINE MAGNESIUM TRISALICYLATE) [Suspect]
  6. FLUTICASONE/SALMETEROL (GALENIC /FLUTICASONE/SALMETEROL/) [Suspect]
  7. FLUTICASONE PROPIONATE [Suspect]
  8. AZITHROMYCIN [Suspect]
     Indication: BRONCHITIS ACUTE

REACTIONS (3)
  - ALANINE AMINOTRANSFERASE INCREASED [None]
  - ASPARTATE AMINOTRANSFERASE INCREASED [None]
  - DRUG TOXICITY [None]
